FAERS Safety Report 8504324 (Version 3)
Quarter: 2012Q4

REPORT INFORMATION
  Report Type: 
  Country: JP (occurrence: JP)
  Receive Date: 20120411
  Receipt Date: 20120904
  Transmission Date: 20130627
  Serious: Yes (Hospitalization)
  Sender: FDA-Public Use
  Company Number: JP-GLAXOSMITHKLINE-B0721358A

PATIENT
  Age: 13 Year
  Sex: Female
  Weight: 40 kg

DRUGS (10)
  1. VALTREX [Suspect]
     Indication: SUICIDE ATTEMPT
     Route: 048
     Dates: start: 20110517, end: 20110517
  2. DOGMATYL [Suspect]
     Dosage: 300MG Per day
     Route: 048
  3. COCARL [Suspect]
     Dosage: 4000MG Per day
     Route: 048
  4. RIZE [Suspect]
     Dosage: 230MG Per day
     Route: 048
  5. PROTECADIN [Suspect]
     Dosage: 120MG Per day
     Route: 048
  6. GASMOTIN [Suspect]
     Dosage: 60MG Per day
     Route: 048
  7. ANTOBRON [Suspect]
     Dosage: 180MG Per day
     Route: 048
  8. PARIET [Suspect]
     Dosage: 180MG Per day
     Route: 048
  9. VICCILLIN [Suspect]
     Dosage: 3000MG Per day
     Route: 048
  10. DOMPERIDONE [Suspect]
     Dosage: 20MG Per day
     Route: 054

REACTIONS (11)
  - Renal disorder [Not Recovered/Not Resolved]
  - Renal impairment [Unknown]
  - Nausea [Unknown]
  - Loss of consciousness [Unknown]
  - Blood creatinine increased [Unknown]
  - Renal impairment [Unknown]
  - Vomiting [Unknown]
  - Intentional overdose [Unknown]
  - Blood urea increased [Unknown]
  - Oliguria [Unknown]
  - Oedema [Unknown]
